FAERS Safety Report 9120799 (Version 2)
Quarter: 2013Q1

REPORT INFORMATION
  Report Type: Spontaneous
  Country: US (occurrence: US)
  Receive Date: 20130226
  Receipt Date: 20130311
  Transmission Date: 20140127
  Serious: Yes (Other)
  Sender: FDA-Public Use
  Company Number: US-PERRIGO-13US001596

PATIENT
  Sex: Female
  Weight: 86.17 kg

DRUGS (2)
  1. ACETAMINOPHEN 500 MG 227 [Suspect]
     Indication: MYALGIA
     Dosage: 1000 MG Q 4-6 HOURS
     Route: 048
     Dates: start: 201301, end: 20130213
  2. ANALGESICS [Concomitant]
     Indication: PAIN
     Dosage: UNK
     Route: 065

REACTIONS (5)
  - Reaction to drug excipients [Recovering/Resolving]
  - Urticaria [Recovering/Resolving]
  - Thirst [Recovering/Resolving]
  - Incorrect drug administration duration [Unknown]
  - Incorrect dose administered [Unknown]
